FAERS Safety Report 4993478-6 (Version None)
Quarter: 2006Q2

REPORT INFORMATION
  Report Type: 
  Country: None (occurrence: None)
  Receive Date: 20060504
  Receipt Date: 20060504
  Transmission Date: 20061013
  Serious: Yes (Other)
  Sender: FDA-Public Use
  Company Number: None

PATIENT
  Age: 33 Year
  Sex: Female
  Weight: 63.5036 kg

DRUGS (1)
  1. TUBERSOL [Suspect]
     Indication: TUBERCULIN TEST
     Dosage: 5 TU 1 ID
     Route: 023
     Dates: start: 20060501, end: 20060501

REACTIONS (9)
  - ABDOMINAL TENDERNESS [None]
  - DIARRHOEA [None]
  - ERYTHEMA [None]
  - INJECTION SITE IRRITATION [None]
  - INJECTION SITE PAIN [None]
  - INJECTION SITE PRURITUS [None]
  - PRURITUS [None]
  - RASH MACULAR [None]
  - URTICARIA [None]
